FAERS Safety Report 6206883-7 (Version None)
Quarter: 2009Q2

REPORT INFORMATION
  Report Type: 
  Country: None (occurrence: None)
  Receive Date: 20090528
  Receipt Date: 20090521
  Transmission Date: 20091009
  Serious: Yes (Other)
  Sender: FDA-Public Use
  Company Number: JP-AVENTIS-200911350JP

PATIENT
  Sex: Male
  Weight: 58.3 kg

DRUGS (7)
  1. ARAVA [Suspect]
     Indication: RHEUMATOID ARTHRITIS
     Route: 048
     Dates: start: 20031030, end: 20031101
  2. ARAVA [Suspect]
     Route: 048
     Dates: start: 20031102
  3. LORCAM [Concomitant]
     Route: 048
     Dates: start: 20031028
  4. MUCOSTA [Concomitant]
     Indication: GASTRITIS PROPHYLAXIS
     Dosage: DOSE: 2 TBLS
     Route: 048
     Dates: start: 20031028
  5. KENACORT                           /00031901/ [Concomitant]
     Indication: RHEUMATOID ARTHRITIS
     Dosage: DOSE: 10 - 20
     Dates: end: 20040309
  6. EPHEDRA TEAS [Concomitant]
     Route: 048
     Dates: start: 20040309, end: 20040313
  7. CLARITIN [Concomitant]
     Dosage: DOSE: 1 TBLET
     Route: 048
     Dates: start: 20040323

REACTIONS (2)
  - CEREBRAL INFARCTION [None]
  - HYPOAESTHESIA [None]
